FAERS Safety Report 8206110-5 (Version None)
Quarter: 2012Q1

REPORT INFORMATION
  Report Type: 
  Country: None (occurrence: None)
  Receive Date: 20120313
  Receipt Date: 20120307
  Transmission Date: 20120608
  Serious: Yes (Other)
  Sender: FDA-Public Use
  Company Number: GB-ABBOTT-12P-167-0912691-00

PATIENT
  Age: 81 Year
  Sex: Female
  Weight: 81 kg

DRUGS (14)
  1. AMOXICILLIN AND CLAVULANATE POTASSIUM [Concomitant]
     Dates: start: 20120224
  2. ALLOPURINOL [Concomitant]
     Indication: PRODUCT USED FOR UNKNOWN INDICATION
     Dates: start: 20111115
  3. CLARITHROMYCIN [Suspect]
     Indication: PRODUCT USED FOR UNKNOWN INDICATION
     Dates: start: 20120224
  4. DOXAZOSIN MESYLATE [Concomitant]
     Indication: PRODUCT USED FOR UNKNOWN INDICATION
     Dates: start: 20111115
  5. ALBUTEROL [Concomitant]
     Indication: PRODUCT USED FOR UNKNOWN INDICATION
     Dates: start: 20111115, end: 20111213
  6. SIMVASTATIN [Concomitant]
     Indication: PRODUCT USED FOR UNKNOWN INDICATION
     Dates: start: 20111115
  7. AMOXICILLIN AND CLAVULANATE POTASSIUM [Concomitant]
     Indication: PRODUCT USED FOR UNKNOWN INDICATION
     Dates: start: 20111229, end: 20120112
  8. LISINOPRIL [Concomitant]
     Indication: PRODUCT USED FOR UNKNOWN INDICATION
     Dates: start: 20111115
  9. ALBUTEROL [Concomitant]
     Dates: start: 20120215
  10. QVAR 40 [Concomitant]
     Dates: start: 20120215
  11. ASPIRIN [Concomitant]
     Indication: PRODUCT USED FOR UNKNOWN INDICATION
     Dates: start: 20120224
  12. LERCANIDIPINE [Interacting]
     Indication: PRODUCT USED FOR UNKNOWN INDICATION
     Dates: start: 20111115
  13. ATENOLOL [Concomitant]
     Indication: PRODUCT USED FOR UNKNOWN INDICATION
     Dates: start: 20111115
  14. QVAR 40 [Concomitant]
     Indication: PRODUCT USED FOR UNKNOWN INDICATION
     Dates: start: 20111115, end: 20111213

REACTIONS (3)
  - ATRIAL FIBRILLATION [None]
  - DRUG INTERACTION [None]
  - HYPOTENSION [None]
